FAERS Safety Report 23517312 (Version 1)
Quarter: 2024Q1

REPORT INFORMATION
  Report Type: Spontaneous
  Country: US (occurrence: US)
  Receive Date: 20240213
  Receipt Date: 20240213
  Transmission Date: 20240410
  Serious: No
  Sender: FDA-Public Use
  Company Number: US-TEVA-VS-3146290

PATIENT
  Age: 65 Year
  Sex: Male

DRUGS (3)
  1. AUSTEDO XR [Suspect]
     Active Substance: DEUTETRABENAZINE
     Route: 065
  2. AUSTEDO XR [Suspect]
     Active Substance: DEUTETRABENAZINE
     Route: 065
  3. AUSTEDO XR [Suspect]
     Active Substance: DEUTETRABENAZINE
     Route: 065

REACTIONS (1)
  - Drug ineffective [Unknown]
